FAERS Safety Report 16106707 (Version 1)
Quarter: 2019Q1

REPORT INFORMATION
  Report Type: Spontaneous
  Country: TR (occurrence: TR)
  Receive Date: 20190322
  Receipt Date: 20190322
  Transmission Date: 20190418
  Serious: Yes (Hospitalization, Other)
  Sender: FDA-Public Use
  Company Number: TR-JNJFOC-20190313913

PATIENT
  Age: 27 Year
  Sex: Male

DRUGS (4)
  1. CHLORPROMAZINE. [Concomitant]
     Active Substance: CHLORPROMAZINE
     Route: 065
  2. XEPLION [Concomitant]
     Active Substance: PALIPERIDONE PALMITATE
     Route: 048
  3. BIPERIDENE [Concomitant]
     Active Substance: BIPERIDEN
     Indication: PRODUCT USED FOR UNKNOWN INDICATION
     Route: 065
  4. RISPERIDONE. [Suspect]
     Active Substance: RISPERIDONE
     Indication: PRODUCT USED FOR UNKNOWN INDICATION
     Route: 065
     Dates: end: 201902

REACTIONS (3)
  - Therapy cessation [Unknown]
  - Hospitalisation [Unknown]
  - Mania [Unknown]

NARRATIVE: CASE EVENT DATE: 201902
